FAERS Safety Report 25125486 (Version 3)
Quarter: 2025Q2

REPORT INFORMATION
  Report Type: Spontaneous
  Country: GB (occurrence: GB)
  Receive Date: 20250326
  Receipt Date: 20250502
  Transmission Date: 20250716
  Serious: Yes (Hospitalization)
  Sender: MYLAN
  Company Number: GB-MYLANLABS-2025M1025437

PATIENT
  Sex: Male

DRUGS (3)
  1. CLOZARIL [Suspect]
     Active Substance: CLOZAPINE
     Indication: Schizophrenia
     Dosage: UNK, BID (150MG AM AND 350MG PM)
     Dates: start: 20140915, end: 20250303
  2. CLOZARIL [Suspect]
     Active Substance: CLOZAPINE
     Dosage: UNK, BID (100MG AM 200MG PM)
     Dates: start: 20250321
  3. PIRENZEPINE [Concomitant]
     Active Substance: PIRENZEPINE
     Dosage: 50 MILLIGRAM, BID (TWICE A DAY) (STOPPED AND NOT RESTARTED BY LIASON TEAM)

REACTIONS (4)
  - Abdominal wall abscess [Unknown]
  - Muscle spasms [Unknown]
  - Agitation [Unknown]
  - Sedation [Unknown]
